FAERS Safety Report 6589450-5 (Version None)
Quarter: 2010Q1

REPORT INFORMATION
  Report Type: 
  Country: None (occurrence: None)
  Receive Date: 20100218
  Receipt Date: 20100212
  Transmission Date: 20100710
  Serious: Yes (Death)
  Sender: FDA-Public Use
  Company Number: US-GILEAD-2010-0026878

PATIENT
  Sex: Female
  Weight: 63.2 kg

DRUGS (12)
  1. LETAIRIS [Suspect]
     Indication: PULMONARY ARTERIAL HYPERTENSION
     Route: 048
     Dates: start: 20080202
  2. LIPITOR [Concomitant]
  3. BABY ASPIRIN [Concomitant]
  4. REMODULIN [Concomitant]
  5. SINGULAIR [Concomitant]
  6. PROTONIX [Concomitant]
  7. MEGESTROL ACETATE [Concomitant]
  8. LORATADINE [Concomitant]
  9. URSODIOL [Concomitant]
  10. CALCIUM +D [Concomitant]
  11. LEVOTHYROXINE SODIUM [Concomitant]
  12. PROZAC [Concomitant]

REACTIONS (1)
  - PNEUMONIA [None]
